FAERS Safety Report 7228968-9 (Version None)
Quarter: 2011Q1

REPORT INFORMATION
  Report Type: 
  Country: None (occurrence: None)
  Receive Date: 20110117
  Receipt Date: 20101008
  Transmission Date: 20110831
  Serious: No
  Sender: FDA-Public Use
  Company Number: US-BAYER-201022383BCC

PATIENT
  Sex: Female
  Weight: 54.545 kg

DRUGS (3)
  1. DERMATOLOGICALS [Concomitant]
  2. ALEVE (CAPLET) [Suspect]
     Indication: BACK PAIN
     Dosage: 1 DF, UNK
     Route: 048
     Dates: start: 20101001, end: 20101007
  3. ONE-A-DAY TEEN ADVANTAGE FOR HER [Concomitant]
     Dosage: UNK

REACTIONS (1)
  - URTICARIA [None]
